FAERS Safety Report 19402980 (Version 2)
Quarter: 2021Q2

REPORT INFORMATION
  Report Type: Spontaneous
  Country: US (occurrence: US)
  Receive Date: 20210610
  Receipt Date: 20210610
  Transmission Date: 20210717
  Serious: Yes (Other)
  Sender: FDA-Public Use
  Company Number: US-TEVA-2014-26042

PATIENT
  Age: 6 Decade
  Sex: Female

DRUGS (3)
  1. ASPIRIN. [Suspect]
     Active Substance: ASPIRIN
     Indication: MYOCARDIAL INFARCTION
     Route: 065
  2. HEPARIN [Suspect]
     Active Substance: HEPARIN SODIUM
     Indication: MYOCARDIAL INFARCTION
     Route: 065
  3. CLOPIDOGREL [Suspect]
     Active Substance: CLOPIDOGREL BISULFATE
     Indication: MYOCARDIAL INFARCTION
     Route: 065

REACTIONS (1)
  - Atheroembolism [Recovered/Resolved]
